FAERS Safety Report 20282886 (Version 1)
Quarter: 2022Q1

REPORT INFORMATION
  Report Type: Spontaneous
  Country: BR (occurrence: BR)
  Receive Date: 20220103
  Receipt Date: 20220103
  Transmission Date: 20220424
  Serious: Yes (Other)
  Sender: FDA-Public Use
  Company Number: BR-AMERICAN REGENT INC-2021003396

PATIENT

DRUGS (1)
  1. FERINJECT [Suspect]
     Active Substance: FERRIC CARBOXYMALTOSE
     Indication: Product used for unknown indication
     Dosage: 1 AMPOULE, 10 ML
     Route: 042

REACTIONS (4)
  - Cardiac failure congestive [Unknown]
  - Fluid intake restriction [Unknown]
  - Serum ferritin decreased [Unknown]
  - Blood pressure decreased [Unknown]
